FAERS Safety Report 6431424-9 (Version None)
Quarter: 2009Q4

REPORT INFORMATION
  Report Type: 
  Country: None (occurrence: None)
  Receive Date: 20091106
  Receipt Date: 20091030
  Transmission Date: 20100525
  Serious: Yes (Hospitalization)
  Sender: FDA-Public Use
  Company Number: PHHO2009US13558

PATIENT
  Sex: Female
  Weight: 84.1 kg

DRUGS (6)
  1. STI571/CGP57148B T35717+TAB [Suspect]
     Indication: CHRONIC GRAFT VERSUS HOST DISEASE
     Dosage: 300 MG DAILY
     Route: 048
     Dates: start: 20090918
  2. MYCOPHENOLATE MOFETIL [Suspect]
  3. CEVIMELINE [Suspect]
  4. METHYLPREDNISOLONE 4MG TAB [Suspect]
  5. SIROLIMUS [Suspect]
  6. FLUCONAZOLE [Concomitant]

REACTIONS (12)
  - ABDOMINAL DISTENSION [None]
  - ASTHENIA [None]
  - DYSPNOEA EXERTIONAL [None]
  - FLUID OVERLOAD [None]
  - GENERALISED OEDEMA [None]
  - HYPOXIA [None]
  - MOBILITY DECREASED [None]
  - OEDEMA PERIPHERAL [None]
  - PERIORBITAL OEDEMA [None]
  - PLEURAL EFFUSION [None]
  - PULMONARY OEDEMA [None]
  - RALES [None]
